FAERS Safety Report 24468419 (Version 3)
Quarter: 2024Q4

REPORT INFORMATION
  Report Type: Spontaneous
  Country: ES (occurrence: ES)
  Receive Date: 20241018
  Receipt Date: 20241126
  Transmission Date: 20250114
  Serious: Yes (Death, Life-Threatening)
  Sender: MYLAN
  Company Number: ES-PFIZER INC-PV202400129786

PATIENT
  Sex: Female

DRUGS (6)
  1. LINEZOLID [Suspect]
     Active Substance: LINEZOLID
     Indication: Septic shock
     Dosage: UNK
     Route: 065
  2. LINEZOLID [Suspect]
     Active Substance: LINEZOLID
     Indication: Pneumonia
  3. AZTREONAM [Suspect]
     Active Substance: AZTREONAM
     Indication: Septic shock
     Dosage: UNK
     Route: 065
  4. AZTREONAM [Suspect]
     Active Substance: AZTREONAM
     Indication: Pneumonia
  5. METRONIDAZOLE [Suspect]
     Active Substance: METRONIDAZOLE
     Indication: Septic shock
     Dosage: UNK
     Route: 065
  6. METRONIDAZOLE [Suspect]
     Active Substance: METRONIDAZOLE
     Indication: Pneumonia

REACTIONS (2)
  - Pre-existing disease [Fatal]
  - Therapeutic product effect incomplete [Unknown]
